FAERS Safety Report 6176551-9 (Version None)
Quarter: 2009Q2

REPORT INFORMATION
  Report Type: 
  Country: None (occurrence: None)
  Receive Date: 20090501
  Receipt Date: 20090430
  Transmission Date: 20091009
  Serious: No
  Sender: FDA-Public Use
  Company Number: US-B.I. PHARMACEUTICALS,INC./RIDGEFIELD-2009-BP-04387BP

PATIENT
  Sex: Female

DRUGS (9)
  1. SPIRIVA [Suspect]
     Indication: EMPHYSEMA
     Dosage: 18MCG
     Dates: start: 20060101, end: 20060101
  2. SPIRIVA [Suspect]
     Indication: CHRONIC OBSTRUCTIVE PULMONARY DISEASE
  3. SPIRIVA [Suspect]
     Indication: ASTHMA
  4. LEVAQUIN [Suspect]
  5. OTHER PRESCRIPTION MEDICATIONS [Concomitant]
     Indication: DYSPNOEA
  6. AZMACORT [Concomitant]
  7. ALUPENT [Concomitant]
  8. ALBUTEROL [Concomitant]
  9. PROAIR HFA [Concomitant]

REACTIONS (2)
  - ADVERSE DRUG REACTION [None]
  - RASH [None]
